FAERS Safety Report 12936070 (Version 1)
Quarter: 2016Q4

REPORT INFORMATION
  Report Type: Report from Study
  Country: DE (occurrence: DE)
  Receive Date: 20161114
  Receipt Date: 20161114
  Transmission Date: 20170207
  Serious: Yes (Hospitalization)
  Sender: FDA-Public Use
  Company Number: DE-ROCHE-1852058

PATIENT
  Age: 77 Year
  Sex: Male

DRUGS (2)
  1. BENDAMUSTINA [Suspect]
     Active Substance: BENDAMUSTINE
     Indication: LYMPHOPLASMACYTOID LYMPHOMA/IMMUNOCYTOMA
     Dosage: 100 TO 175 MG?LAST DOSE PRIOR TO SAE 25/JUN/2013
     Route: 042
     Dates: start: 20130129
  2. RITUXIMAB [Suspect]
     Active Substance: RITUXIMAB
     Indication: LYMPHOPLASMACYTOID LYMPHOMA/IMMUNOCYTOMA
     Dosage: MAINTENANCE DOSE FROM 21/OCT/2013 AND LAST DOSE PRIOR TO SAE ON 28/SEP/2015
     Route: 042
     Dates: start: 20130128

REACTIONS (1)
  - Hepatic neoplasm [Not Recovered/Not Resolved]

NARRATIVE: CASE EVENT DATE: 201610
